FAERS Safety Report 9057990 (Version 2)
Quarter: 2013Q1

REPORT INFORMATION
  Report Type: Spontaneous
  Country: US (occurrence: US)
  Receive Date: 20130211
  Receipt Date: 20130305
  Transmission Date: 20140127
  Serious: Yes (Death, Hospitalization, Other)
  Sender: FDA-Public Use
  Company Number: US-BIOGENIDEC-2013BI010639

PATIENT
  Age: 44 Year
  Sex: Female

DRUGS (12)
  1. TYSABRI [Suspect]
     Indication: RELAPSING-REMITTING MULTIPLE SCLEROSIS
     Route: 042
     Dates: start: 20091208, end: 20121231
  2. TIZANIDINE [Concomitant]
  3. GABAPENTIN [Concomitant]
  4. EMPIRIN [Concomitant]
  5. NYSTATIN [Concomitant]
  6. AMPYRA [Concomitant]
  7. EFFEXOR [Concomitant]
  8. NEURONTIN [Concomitant]
  9. LEVOXYL [Concomitant]
  10. LOPRESSOR [Concomitant]
  11. ZANAFLEX [Concomitant]
  12. CANNABIS SATIVA SUBSP. INDICA TOP [Concomitant]

REACTIONS (2)
  - Progressive multifocal leukoencephalopathy [Fatal]
  - Immune reconstitution inflammatory syndrome [Unknown]
